FAERS Safety Report 6896529-7 (Version None)
Quarter: 2010Q3

REPORT INFORMATION
  Report Type: 
  Country: None (occurrence: None)
  Receive Date: 20100802
  Receipt Date: 20100624
  Transmission Date: 20110219
  Serious: Yes (Hospitalization, Other)
  Sender: FDA-Public Use
  Company Number: PHHY2010TW36832

PATIENT
  Sex: Female
  Weight: 67 kg

DRUGS (1)
  1. ALISKIREN ALI+TAB+HT [Suspect]
     Indication: HYPERTENSION
     Dosage: 150 MG DAILY
     Route: 048
     Dates: start: 20100501

REACTIONS (9)
  - ABDOMINAL PAIN UPPER [None]
  - ANAEMIA [None]
  - COLON CANCER [None]
  - DIZZINESS [None]
  - GASTRECTOMY [None]
  - GASTRITIS [None]
  - HYPERGLYCAEMIA [None]
  - STEATORRHOEA [None]
  - WEIGHT DECREASED [None]
